FAERS Safety Report 10399529 (Version 1)
Quarter: 2014Q1

REPORT INFORMATION
  Report Type: Spontaneous
  Country: US (occurrence: None)
  Receive Date: 20130815
  Receipt Date: 20130815
  Transmission Date: 20141002
  Serious: Yes (Other)
  Sender: FDA-Public Use
  Company Number: ADR-2012-01980

PATIENT
  Age: 41 Year
  Sex: Female

DRUGS (1)
  1. GABLOFEN [Suspect]
     Indication: MULTIPLE SCLEROSIS

REACTIONS (1)
  - Muscle tightness [None]
